FAERS Safety Report 5095199-0 (Version None)
Quarter: 2006Q3

REPORT INFORMATION
  Report Type: 
  Country: None (occurrence: None)
  Receive Date: 20060901
  Receipt Date: 20060802
  Transmission Date: 20061208
  Serious: Yes (Death, Life-Threatening, Hospitalization, Disabling)
  Sender: FDA-Public Use
  Company Number: JP-JPN-A200602932

PATIENT
  Age: 50 Year
  Sex: Female
  Weight: 72 kg

DRUGS (16)
  1. PAXIL [Suspect]
     Indication: ANXIETY
     Dosage: 20MG TWICE PER DAY
     Route: 048
     Dates: start: 20020101, end: 20060613
  2. ZYPREXA [Suspect]
     Indication: DELUSION
     Dosage: 5MG TWICE PER DAY
     Route: 048
     Dates: start: 20050728, end: 20060613
  3. ZYPREXA [Suspect]
     Dosage: 10MG TWICE PER DAY
     Route: 048
     Dates: start: 20050804, end: 20060613
  4. RISPERDAL [Suspect]
     Indication: ANXIETY
     Route: 048
     Dates: start: 20020101, end: 20060613
  5. RISPERDAL [Suspect]
     Dosage: .1G TWICE PER DAY
     Route: 048
  6. SOLANAX [Suspect]
     Indication: ANXIETY
     Dosage: .4MG TWICE PER DAY
     Route: 048
     Dates: start: 20020101, end: 20060613
  7. CONSTAN [Concomitant]
     Route: 048
  8. AKINETON [Concomitant]
     Indication: PARKINSONISM
     Dosage: .3G PER DAY
     Route: 048
     Dates: start: 20020101, end: 20060613
  9. ARTANE [Concomitant]
     Indication: PARKINSONISM
     Dosage: .2G PER DAY
     Route: 048
     Dates: start: 20050223, end: 20060613
  10. ACINON [Concomitant]
     Indication: OBESITY
     Dosage: 300MG PER DAY
     Route: 048
     Dates: start: 20060310, end: 20060613
  11. DEPAS [Concomitant]
     Indication: ANXIETY
     Route: 048
     Dates: start: 20050901, end: 20060613
  12. DIOVAN [Concomitant]
     Route: 048
  13. URSO [Concomitant]
     Route: 048
  14. PURSENNID [Concomitant]
     Route: 048
  15. EBRANTIL [Concomitant]
     Indication: NEUROGENIC BLADDER
     Route: 048
     Dates: start: 20060403, end: 20060612
  16. POLLAKISU [Concomitant]
     Indication: NEUROGENIC BLADDER
     Dosage: 6MG PER DAY
     Route: 048
     Dates: start: 20060403, end: 20060612

REACTIONS (15)
  - BLOOD SODIUM DECREASED [None]
  - BRAIN DEATH [None]
  - DEPRESSED LEVEL OF CONSCIOUSNESS [None]
  - DRUG WITHDRAWAL SYNDROME [None]
  - FEELING ABNORMAL [None]
  - HYPONATRAEMIA [None]
  - HYPOXIA [None]
  - INAPPROPRIATE ANTIDIURETIC HORMONE SECRETION [None]
  - MALAISE [None]
  - MUSCLE TIGHTNESS [None]
  - NEUROLEPTIC MALIGNANT SYNDROME [None]
  - PYREXIA [None]
  - SPEECH DISORDER [None]
  - TALIPES [None]
  - TREMOR [None]
